FAERS Safety Report 9348103 (Version 3)
Quarter: 2013Q3

REPORT INFORMATION
  Report Type: Spontaneous
  Country: DE (occurrence: DE)
  Receive Date: 20130614
  Receipt Date: 20130816
  Transmission Date: 20140515
  Serious: Yes (Hospitalization, Other)
  Sender: FDA-Public Use
  Company Number: DE-JNJFOC-20130604890

PATIENT
  Age: 52 Year
  Sex: Male
  Weight: 74 kg

DRUGS (8)
  1. REMICADE [Suspect]
     Indication: COLITIS ULCERATIVE
     Route: 042
     Dates: start: 20130415
  2. REMICADE [Suspect]
     Indication: COLITIS ULCERATIVE
     Route: 042
     Dates: start: 20130429, end: 20130429
  3. REMICADE [Suspect]
     Indication: INFLAMMATORY BOWEL DISEASE
     Route: 042
     Dates: start: 20130429, end: 20130429
  4. REMICADE [Suspect]
     Indication: INFLAMMATORY BOWEL DISEASE
     Route: 042
     Dates: start: 20130415
  5. PANTOPRAZOLE [Concomitant]
     Indication: OESOPHAGITIS
     Route: 065
     Dates: start: 2008
  6. NOVAMIN [Concomitant]
     Indication: PAIN
     Route: 065
     Dates: start: 201303
  7. ACTRAPHANE [Concomitant]
     Indication: DIABETES MELLITUS
     Route: 065
  8. PROTAPHANE [Concomitant]
     Indication: DIABETES MELLITUS
     Route: 065

REACTIONS (1)
  - Endocarditis [Recovered/Resolved]
